FAERS Safety Report 13949937 (Version 1)
Quarter: 2017Q3

REPORT INFORMATION
  Report Type: Spontaneous
  Country: US (occurrence: US)
  Receive Date: 20170908
  Receipt Date: 20170908
  Transmission Date: 20171128
  Serious: Yes (Hospitalization, Other)
  Sender: FDA-Public Use
  Company Number: US-ROCHE-1133799

PATIENT
  Sex: Male

DRUGS (2)
  1. PLASMAPHERESIS [Concomitant]
     Active Substance: UNSPECIFIED INGREDIENT
  2. RITUXAN [Suspect]
     Active Substance: RITUXIMAB
     Indication: PRODUCT USED FOR UNKNOWN INDICATION
     Route: 065
     Dates: start: 20020130

REACTIONS (7)
  - Balance disorder [Unknown]
  - Muscular weakness [Unknown]
  - Abdominal distension [Unknown]
  - Weight decreased [Unknown]
  - Constipation [Unknown]
  - Neutropenia [Unknown]
  - Pneumonia [Unknown]
